FAERS Safety Report 8512106 (Version 2)
Quarter: 2013Q2

REPORT INFORMATION
  Report Type: Spontaneous
  Country: US (occurrence: US)
  Receive Date: 20120413
  Receipt Date: 20130617
  Transmission Date: 20140414
  Serious: Yes (Hospitalization, Disabling)
  Sender: FDA-Public Use
  Company Number: US-ASTRAZENECA-2011SE41515

PATIENT
  Age: 60 Year
  Sex: Female
  Weight: 106.1 kg

DRUGS (9)
  1. NEXIUM [Suspect]
     Indication: GASTROOESOPHAGEAL REFLUX DISEASE
     Dosage: ONE PER DAY
     Route: 048
  2. ALLOPURINOL [Concomitant]
     Indication: GOUT
  3. LISINOPRIL [Concomitant]
     Indication: BLOOD PRESSURE
  4. XANAX [Concomitant]
     Indication: ANXIETY
  5. FLEXERIL [Concomitant]
  6. LORTAB [Concomitant]
     Indication: PAIN
  7. EXFORGE HCT [Concomitant]
     Indication: BLOOD PRESSURE
  8. FUROSEMIDE [Concomitant]
     Indication: FLUID IMBALANCE
  9. ALLMODINE [Concomitant]
     Indication: BLOOD PRESSURE

REACTIONS (8)
  - Mental disorder [Unknown]
  - Pain in extremity [Unknown]
  - Chest pain [Unknown]
  - Osteopenia [Unknown]
  - Bone loss [Unknown]
  - Bone pain [Unknown]
  - Arthritis [Unknown]
  - Rheumatoid arthritis [Unknown]
